FAERS Safety Report 5470178-X (Version None)
Quarter: 2007Q3

REPORT INFORMATION
  Report Type: 
  Country: None (occurrence: None)
  Receive Date: 20070924
  Receipt Date: 20070719
  Transmission Date: 20080115
  Serious: Yes (Other)
  Sender: FDA-Public Use
  Company Number: 2007318507

PATIENT
  Age: 6 Year
  Sex: Female
  Weight: 21.8 kg

DRUGS (1)
  1. LISTERINE AGENT COOL BLUE BUBBLE BLAST(NO ACTIVE INGREDIENT) [Suspect]
     Indication: DENTAL PLAQUE
     Dosage: UNSPECIFIED AMOUNT, ORAL
     Route: 048
     Dates: start: 20070228, end: 20070328

REACTIONS (2)
  - HERPES SIMPLEX [None]
  - NECK PAIN [None]
